FAERS Safety Report 21785118 (Version 1)
Quarter: 2022Q4

REPORT INFORMATION
  Report Type: Spontaneous
  Country: CN (occurrence: None)
  Receive Date: 20221227
  Receipt Date: 20221227
  Transmission Date: 20230113
  Serious: Yes (Other)
  Sender: FDA-Public Use
  Company Number: CN-ROCHE-3251893

PATIENT
  Age: 52 Year
  Sex: Female
  Weight: 55 kg

DRUGS (3)
  1. OSELTAMIVIR [Suspect]
     Active Substance: OSELTAMIVIR
     Indication: Upper respiratory tract infection
     Route: 048
     Dates: start: 20221218, end: 20221219
  2. FU PO GAN MAO [Concomitant]
     Indication: Dry throat
     Dosage: DF MEANS PACK
     Route: 048
     Dates: start: 20221219
  3. FU PO GAN MAO [Concomitant]
     Indication: Oropharyngeal pain

REACTIONS (3)
  - Hypothermia [Recovered/Resolved]
  - Off label use [Unknown]
  - Intentional product misuse [Unknown]

NARRATIVE: CASE EVENT DATE: 20221219
